FAERS Safety Report 6409669-3 (Version None)
Quarter: 2009Q4

REPORT INFORMATION
  Report Type: 
  Country: None (occurrence: None)
  Receive Date: 20091020
  Receipt Date: 20091020
  Transmission Date: 20100525
  Serious: Yes (Hospitalization, Other)
  Sender: FDA-Public Use
  Company Number: None

PATIENT
  Age: 63 Year
  Sex: Male
  Weight: 81.6475 kg

DRUGS (1)
  1. RAMIPRIL [Suspect]
     Indication: CARDIAC DISORDER
     Dosage: 1 DAILY
     Dates: start: 20080301, end: 20080901

REACTIONS (2)
  - MALAISE [None]
  - NAUSEA [None]
